FAERS Safety Report 20380051 (Version 2)
Quarter: 2022Q1

REPORT INFORMATION
  Report Type: Spontaneous
  Country: GR (occurrence: GR)
  Receive Date: 20220126
  Receipt Date: 20220220
  Transmission Date: 20220423
  Serious: No
  Sender: FDA-Public Use
  Company Number: GR-JNJFOC-20220105894

PATIENT
  Age: 72 Year
  Sex: Male
  Weight: 69 kg

DRUGS (4)
  1. FENTANYL [Suspect]
     Active Substance: FENTANYL
     Indication: Pain
     Dosage: RECEIVED PRODUCT DUROGESIC 25MG TWO WEEKS AGO?STRENGTH: 25.00 MCG/HR
     Route: 062
     Dates: start: 202112
  2. FENTANYL [Suspect]
     Active Substance: FENTANYL
     Indication: Mesothelioma malignant
  3. FENTANYL [Suspect]
     Active Substance: FENTANYL
  4. ACETAMINOPHEN\CODEINE PHOSPHATE [Concomitant]
     Active Substance: ACETAMINOPHEN\CODEINE PHOSPHATE
     Indication: Product used for unknown indication
     Dosage: (500+30)MG/TAB
     Route: 065

REACTIONS (2)
  - Product adhesion issue [Unknown]
  - Pain [Not Recovered/Not Resolved]

NARRATIVE: CASE EVENT DATE: 20220105
